FAERS Safety Report 8019171-3 (Version None)
Quarter: 2012Q1

REPORT INFORMATION
  Report Type: 
  Country: None (occurrence: None)
  Receive Date: 20120103
  Receipt Date: 20111227
  Transmission Date: 20120608
  Serious: No
  Sender: FDA-Public Use
  Company Number: US-JNJFOC-20110804975

PATIENT
  Sex: Female
  Weight: 68.95 kg

DRUGS (10)
  1. PREDNISONE TAB [Concomitant]
     Route: 048
     Dates: start: 20101230
  2. UNKNOWN MEDICATION [Concomitant]
     Route: 062
     Dates: start: 20101230
  3. LYRICA [Concomitant]
     Route: 048
     Dates: start: 20101230
  4. VICODIN [Concomitant]
     Route: 048
     Dates: start: 20101230
  5. SEROQUEL [Concomitant]
     Route: 048
     Dates: start: 20101230
  6. DURAGESIC-100 [Suspect]
     Indication: BACK PAIN
     Dosage: 25UG/HR + 12.5UG/HR = 37.5UG/HR
     Route: 062
     Dates: start: 20110701
  7. PREVACID [Concomitant]
     Route: 048
     Dates: start: 20101230
  8. FLORINEF [Concomitant]
     Route: 048
     Dates: start: 20101230
  9. TEMAZEPAM [Concomitant]
     Route: 048
     Dates: start: 20101230
  10. UNKNOWN MEDICATION [Concomitant]
     Route: 048
     Dates: start: 20101230

REACTIONS (6)
  - APPLICATION SITE IRRITATION [None]
  - PRODUCT QUALITY ISSUE [None]
  - DRUG INEFFECTIVE [None]
  - DERMATITIS CONTACT [None]
  - DRUG ADMINISTERED AT INAPPROPRIATE SITE [None]
  - WRONG TECHNIQUE IN DRUG USAGE PROCESS [None]
